FAERS Safety Report 15483628 (Version 1)
Quarter: 2018Q4

REPORT INFORMATION
  Report Type: Spontaneous
  Country: GB (occurrence: GB)
  Receive Date: 20181010
  Receipt Date: 20181010
  Transmission Date: 20190205
  Serious: Yes (Death)
  Sender: FDA-Public Use
  Company Number: GB-ASTRAZENECA-2018SF29258

PATIENT
  Age: 24575 Day
  Sex: Male

DRUGS (1)
  1. OSIMERTINIB. [Suspect]
     Active Substance: OSIMERTINIB
     Dosage: 80
     Route: 048
     Dates: start: 20180713, end: 20180918

REACTIONS (1)
  - Disease progression [Fatal]

NARRATIVE: CASE EVENT DATE: 20181001
